FAERS Safety Report 8230563-X (Version None)
Quarter: 2012Q1

REPORT INFORMATION
  Report Type: 
  Country: None (occurrence: None)
  Receive Date: 20120320
  Receipt Date: 20120305
  Transmission Date: 20120608
  Serious: Yes (Other)
  Sender: FDA-Public Use
  Company Number: JP-2012-13541

PATIENT
  Age: 57 Year
  Sex: Male
  Weight: 48 kg

DRUGS (21)
  1. LASIX [Suspect]
     Indication: CARDIAC FAILURE
     Dosage: 10 MG MILLIGRAM(S), DAILY DOSE, INTRAVENOUS
     Dates: start: 20120118
  2. WARFARIN SODIUM [Concomitant]
  3. KCI (KCI) [Concomitant]
  4. CARVEDILOL [Concomitant]
  5. DOBUPUM (DOBUTAMINE HYDROCHLORIDE) [Concomitant]
  6. HERPRAMINE (DENOPAMINE) [Concomitant]
  7. SLOW-K [Concomitant]
  8. LENDEM  (BROTIZOLAM) [Concomitant]
  9. XYLOCAINE [Concomitant]
  10. VITAMEDIN (BENFOTIAMINE, CYANOCOBALAMIN, PYRIDOXINE HYDORCHLORIDE) [Concomitant]
  11. SAMSCA [Suspect]
     Indication: FLUID RETENTION
     Dosage: 15 MG MILLIGRAM(S), QAM, ORAL
     Route: 048
     Dates: start: 20120119, end: 20120121
  12. DIART (AZOSEMIDE) TABLET [Suspect]
     Indication: CARDIAC FAILURE
     Dosage: 60 MG MILLIGRAM(S), DAILY DOSE, INTRAVENOUS
     Route: 042
     Dates: end: 20120121
  13. RABEPRAZOLE SODIUM [Concomitant]
  14. DEPAS (ETIZOLAM) [Concomitant]
  15. DIGOXIN [Concomitant]
  16. APORASNON (SPIRONOLACTONE) [Concomitant]
  17. ALDACTONE [Suspect]
     Dosage: ORAL
     Route: 048
  18. TORSEMIDE [Concomitant]
  19. FUROSEMIDE [Concomitant]
  20. TAMSULOSIN HYDROCHLORIDE [Concomitant]
  21. FERROMIA (FERROUS SODIUM CITRATE) [Concomitant]

REACTIONS (4)
  - POLYURIA [None]
  - BLOOD PRESSURE DECREASED [None]
  - THIRST [None]
  - FLUID RETENTION [None]
